FAERS Safety Report 8181317-4 (Version None)
Quarter: 2012Q1

REPORT INFORMATION
  Report Type: 
  Country: None (occurrence: None)
  Receive Date: 20120302
  Receipt Date: 20120227
  Transmission Date: 20120608
  Serious: No
  Sender: FDA-Public Use
  Company Number: US-PFIZER INC-2012052032

PATIENT
  Sex: Male

DRUGS (1)
  1. SUTENT [Suspect]
     Dosage: 50 MG, (12.5 MG X 4 CAP)
     Route: 048
     Dates: start: 20120214

REACTIONS (2)
  - COUGH [None]
  - FATIGUE [None]
